FAERS Safety Report 4666372-8 (Version None)
Quarter: 2005Q2

REPORT INFORMATION
  Report Type: 
  Country: None (occurrence: None)
  Receive Date: 20050517
  Receipt Date: 20050504
  Transmission Date: 20051028
  Serious: Yes (Hospitalization, Other)
  Sender: FDA-Public Use
  Company Number: 2005069839

PATIENT
  Age: 52 Year
  Sex: Female

DRUGS (3)
  1. BEXTRA [Suspect]
     Indication: BONE PAIN
     Dosage: 10 MG, ORAL
     Route: 048
  2. SERTRALINE HCL [Concomitant]
  3. ZOLPIDEM TARTRATE [Concomitant]

REACTIONS (7)
  - ABASIA [None]
  - AGITATION [None]
  - DYSPNOEA [None]
  - FEAR [None]
  - HYPERTENSION [None]
  - HYPOAESTHESIA ORAL [None]
  - TRANSIENT ISCHAEMIC ATTACK [None]
